FAERS Safety Report 6201886-0 (Version None)
Quarter: 2009Q2

REPORT INFORMATION
  Report Type: 
  Country: None (occurrence: None)
  Receive Date: 20090526
  Receipt Date: 20090519
  Transmission Date: 20091009
  Serious: Yes (Hospitalization)
  Sender: FDA-Public Use
  Company Number: CA-PFIZER INC-2005062546

PATIENT
  Age: 43 Year

DRUGS (25)
  1. MARAVIROC [Suspect]
     Indication: HIV TEST POSITIVE
     Route: 048
     Dates: start: 20050331, end: 20050418
  2. MARAVIROC [Suspect]
     Dosage: UNK
     Route: 048
     Dates: start: 20050425, end: 20080408
  3. NEVIRAPINE [Concomitant]
     Indication: HIV TEST POSITIVE
     Dosage: BID: DAILY
     Route: 048
     Dates: start: 20050425
  4. NEVIRAPINE [Concomitant]
     Dosage: BID: DAILY
     Route: 048
     Dates: start: 20050331, end: 20050418
  5. ATAZANAVIR SULFATE [Concomitant]
     Indication: HIV TEST POSITIVE
     Dosage: QD: DAILY
     Route: 048
     Dates: start: 20050331, end: 20050418
  6. ATAZANAVIR SULFATE [Concomitant]
     Dosage: QD: DAILY
     Route: 048
     Dates: start: 20050425
  7. RITONAVIR [Concomitant]
     Indication: HIV TEST POSITIVE
     Dosage: QD: DAILY
     Route: 048
     Dates: start: 20050331, end: 20050418
  8. RITONAVIR [Concomitant]
     Dosage: QD: DAILY
     Route: 048
     Dates: start: 20050425
  9. COMBIVIR [Concomitant]
     Indication: HIV TEST POSITIVE
     Dosage: 1TAB; 2TAB,BID: DAILY
     Route: 048
     Dates: start: 20050331, end: 20050418
  10. COMBIVIR [Concomitant]
     Dosage: 1TAB; 2TAB,BID: DAILY
     Route: 048
     Dates: start: 20050425
  11. TENOFOVIR [Concomitant]
     Indication: HIV TEST POSITIVE
     Dosage: QD: DAILY
     Route: 048
     Dates: start: 20050331, end: 20050418
  12. TENOFOVIR [Concomitant]
     Dosage: QD: DAILY
     Route: 048
     Dates: start: 20050425
  13. SEPTRA [Concomitant]
     Route: 048
     Dates: end: 20050418
  14. SEPTRA [Concomitant]
     Route: 048
     Dates: start: 20050425
  15. TYLENOL [Concomitant]
     Route: 048
     Dates: start: 20050420, end: 20050422
  16. IBUPROFEN [Concomitant]
     Route: 048
     Dates: start: 20050420, end: 20050421
  17. ALL OTHER THERAPEUTIC PRODUCTS [Concomitant]
     Route: 042
     Dates: start: 20050419, end: 20050422
  18. ALL OTHER THERAPEUTIC PRODUCTS [Concomitant]
     Route: 042
     Dates: start: 20050419, end: 20050421
  19. ALL OTHER THERAPEUTIC PRODUCTS [Concomitant]
     Route: 042
     Dates: start: 20050420, end: 20050423
  20. GASTROLYTE [Concomitant]
     Route: 048
     Dates: start: 20050420, end: 20050421
  21. GRAVOL TAB [Concomitant]
     Route: 042
     Dates: start: 20050420, end: 20050421
  22. ALL OTHER THERAPEUTIC PRODUCTS [Concomitant]
     Route: 042
     Dates: start: 20050422, end: 20050425
  23. PEDIALYTE [Concomitant]
     Route: 048
     Dates: start: 20050422, end: 20050423
  24. ALL OTHER THERAPEUTIC PRODUCTS [Concomitant]
     Route: 042
     Dates: start: 20050421, end: 20050422
  25. ALL OTHER THERAPEUTIC PRODUCTS [Concomitant]
     Route: 042
     Dates: start: 20050421, end: 20050422

REACTIONS (1)
  - GASTROENTERITIS VIRAL [None]
